FAERS Safety Report 5777605-9 (Version None)
Quarter: 2008Q2

REPORT INFORMATION
  Report Type: 
  Country: None (occurrence: None)
  Receive Date: 20080618
  Receipt Date: 20080606
  Transmission Date: 20081010
  Serious: Yes (Other)
  Sender: FDA-Public Use
  Company Number: US-PFIZER INC-2008049387

PATIENT
  Sex: Female

DRUGS (2)
  1. CHANTIX [Suspect]
  2. XANAX [Suspect]

REACTIONS (1)
  - PANIC ATTACK [None]
